FAERS Safety Report 12249068 (Version 1)
Quarter: 2016Q2

REPORT INFORMATION
  Report Type: Spontaneous
  Country: US (occurrence: None)
  Receive Date: 20160407
  Receipt Date: 20160407
  Transmission Date: 20160815
  Serious: No
  Sender: FDA-Public Use
  Company Number: None

PATIENT
  Age: 59 Year
  Sex: Male
  Weight: 81.65 kg

DRUGS (2)
  1. NAPROXEN. [Suspect]
     Active Substance: NAPROXEN
     Indication: FATIGUE
     Route: 048
  2. NAPROXEN. [Suspect]
     Active Substance: NAPROXEN
     Indication: PSORIASIS
     Route: 048

REACTIONS (7)
  - Product solubility abnormal [None]
  - Wrong technique in product usage process [None]
  - Medication residue present [None]
  - Nail disorder [None]
  - Fatigue [None]
  - Psoriasis [None]
  - Product substitution issue [None]

NARRATIVE: CASE EVENT DATE: 20140630
